FAERS Safety Report 9667692 (Version 1)
Quarter: 2013Q4

REPORT INFORMATION
  Report Type: Spontaneous
  Country: US (occurrence: US)
  Receive Date: 20131101
  Receipt Date: 20131101
  Transmission Date: 20140711
  Serious: No
  Sender: FDA-Public Use
  Company Number: US-SAVIENT-2012S1000042

PATIENT
  Age: 58 Year
  Sex: Male
  Weight: 102.06 kg

DRUGS (3)
  1. KRYSTEXXA INJECTION [Suspect]
     Indication: GOUT
     Route: 042
     Dates: start: 201108, end: 201202
  2. PREDNISONE [Concomitant]
     Indication: PREMEDICATION
     Dates: start: 201108, end: 201202
  3. COLCHICINE [Concomitant]
     Indication: PRODUCT USED FOR UNKNOWN INDICATION

REACTIONS (1)
  - Gout [Recovered/Resolved]
